FAERS Safety Report 5887725-6 (Version None)
Quarter: 2008Q3

REPORT INFORMATION
  Report Type: 
  Country: None (occurrence: None)
  Receive Date: 20080918
  Receipt Date: 20080909
  Transmission Date: 20090109
  Serious: Yes (Life-Threatening, Hospitalization)
  Sender: FDA-Public Use
  Company Number: BE-AVENTIS-200814865EU

PATIENT
  Age: 56 Year
  Sex: Female
  Weight: 122 kg

DRUGS (4)
  1. FUROSEMIDE [Suspect]
     Indication: HYPERTENSION
  2. METFORMIN HCL [Suspect]
  3. VALSARTAN/HYDROCHLOORTHIAZIDE [Suspect]
     Indication: HYPERTENSION
     Dosage: DOSE: 160/12.5
  4. PIROXICAM [Suspect]

REACTIONS (3)
  - DRUG INTERACTION [None]
  - LACTIC ACIDOSIS [None]
  - RENAL FAILURE ACUTE [None]
